FAERS Safety Report 5420091-9 (Version None)
Quarter: 2007Q3

REPORT INFORMATION
  Report Type: 
  Country: None (occurrence: None)
  Receive Date: 20070820
  Receipt Date: 20070814
  Transmission Date: 20080115
  Serious: Yes (Death)
  Sender: FDA-Public Use
  Company Number: BR-PFIZER INC-2007067741

PATIENT
  Sex: Female

DRUGS (1)
  1. SILDENAFIL (PAH) [Suspect]
     Indication: PULMONARY HYPERTENSION
     Route: 048

REACTIONS (2)
  - COAGULOPATHY [None]
  - RETROPERITONEAL HAEMATOMA [None]
